FAERS Safety Report 14102763 (Version 1)
Quarter: 2017Q4

REPORT INFORMATION
  Report Type: Spontaneous
  Country: NL (occurrence: NL)
  Receive Date: 20171018
  Receipt Date: 20171018
  Transmission Date: 20180321
  Serious: Yes (Other)
  Sender: FDA-Public Use
  Company Number: NL-MYLANLABS-2017M1064582

PATIENT
  Sex: Male
  Weight: 81 kg

DRUGS (1)
  1. METHYLFENIDAAT HCL MYLAN RETARD 36 MG, TABLETTEN MET VERLENGDE AFGIFTE [Suspect]
     Active Substance: METHYLPHENIDATE HYDROCHLORIDE
     Indication: ATTENTION DEFICIT/HYPERACTIVITY DISORDER
     Dosage: 1DD2 VAN 36 MG (72MG BIJELKAAR)
     Route: 048
     Dates: start: 2015, end: 20170217

REACTIONS (4)
  - Feeling of despair [Recovered/Resolved]
  - Depressed mood [Recovered/Resolved]
  - Weight decreased [Unknown]
  - Suicidal ideation [Recovered/Resolved]

NARRATIVE: CASE EVENT DATE: 2015
